FAERS Safety Report 6032858-7 (Version None)
Quarter: 2009Q1

REPORT INFORMATION
  Report Type: 
  Country: None (occurrence: None)
  Receive Date: 20090107
  Receipt Date: 20090107
  Transmission Date: 20090719
  Serious: No
  Sender: FDA-Public Use
  Company Number: None

PATIENT
  Age: 40 Year
  Sex: Female
  Weight: 104.3273 kg

DRUGS (2)
  1. CYMBALTA [Suspect]
     Indication: DEPRESSION
     Dosage: 60MG 1 CAPSULE EVERY DAY PO
     Route: 048
     Dates: start: 20080826, end: 20081207
  2. CYMBALTA [Suspect]
     Indication: FIBROMYALGIA
     Dosage: 60MG 1 CAPSULE EVERY DAY PO
     Route: 048
     Dates: start: 20080826, end: 20081207

REACTIONS (15)
  - ABNORMAL DREAMS [None]
  - BALANCE DISORDER [None]
  - DISTURBANCE IN ATTENTION [None]
  - DIZZINESS [None]
  - DRUG INEFFECTIVE [None]
  - DRUG WITHDRAWAL SYNDROME [None]
  - FATIGUE [None]
  - HALLUCINATION [None]
  - MALAISE [None]
  - NAUSEA [None]
  - NIGHTMARE [None]
  - PARAESTHESIA [None]
  - PARALYSIS [None]
  - SLEEP DISORDER [None]
  - VOMITING [None]
